FAERS Safety Report 21472829 (Version 12)
Quarter: 2025Q3

REPORT INFORMATION
  Report Type: Spontaneous
  Country: IN (occurrence: IN)
  Receive Date: 20221018
  Receipt Date: 20250709
  Transmission Date: 20251021
  Serious: Yes (Other)
  Sender: PFIZER
  Company Number: IN-PFIZER INC-PV202200005476

PATIENT
  Age: 64 Year
  Sex: Male

DRUGS (4)
  1. LORLATINIB [Suspect]
     Active Substance: LORLATINIB
     Indication: Non-small cell lung cancer metastatic
     Dosage: 75 MG, 1X/DAY FOR 3 MONTHS
     Route: 048
  2. LORLATINIB [Suspect]
     Active Substance: LORLATINIB
     Dosage: 100 MG, 1X/DAY
     Route: 048
  3. ROSUVASTATIN CALCIUM [Concomitant]
     Active Substance: ROSUVASTATIN CALCIUM
     Indication: Diabetes mellitus
     Dosage: 40 MG, 3X/DAY
  4. FENOFIBRATE [Concomitant]
     Active Substance: FENOFIBRATE
     Indication: Diabetes mellitus
     Dosage: 160 MG, 1X/DAY

REACTIONS (14)
  - Glycosylated haemoglobin increased [Not Recovered/Not Resolved]
  - Platelet count decreased [Unknown]
  - Pulmonary fibrosis [Unknown]
  - Blood triglycerides increased [Not Recovered/Not Resolved]
  - Low density lipoprotein increased [Not Recovered/Not Resolved]
  - Renal cyst [Unknown]
  - Blood glucose abnormal [Unknown]
  - Blood pressure increased [Unknown]
  - Blood cholesterol increased [Not Recovered/Not Resolved]
  - Chest X-ray abnormal [Unknown]
  - Blood potassium increased [Not Recovered/Not Resolved]
  - Blood glucose increased [Not Recovered/Not Resolved]
  - High density lipoprotein decreased [Not Recovered/Not Resolved]
  - Prostatomegaly [Not Recovered/Not Resolved]

NARRATIVE: CASE EVENT DATE: 20221012
